FAERS Safety Report 9706741 (Version 1)
Quarter: 2013Q4

REPORT INFORMATION
  Report Type: Spontaneous
  Country: US (occurrence: None)
  Receive Date: 20131122
  Receipt Date: 20131122
  Transmission Date: 20140711
  Serious: Yes (Death)
  Sender: FDA-Public Use
  Company Number: None

PATIENT
  Age: 77 Year
  Sex: 0
  Weight: 44 kg

DRUGS (1)
  1. RISPERDAL [Suspect]
     Indication: FLUID RETENTION
     Dosage: LASIX TWICE DAILY INTO A VEIN
     Dates: start: 20131024, end: 20131109

REACTIONS (5)
  - Screaming [None]
  - Mental disorder [None]
  - Respiratory arrest [None]
  - Blood sodium abnormal [None]
  - Blood potassium abnormal [None]
